FAERS Safety Report 8523859-5 (Version None)
Quarter: 2012Q3

REPORT INFORMATION
  Report Type: 
  Country: None (occurrence: None)
  Receive Date: 20120720
  Receipt Date: 20120711
  Transmission Date: 20120928
  Serious: Yes (Other)
  Sender: FDA-Public Use
  Company Number: US-JNJFOC-20120705796

PATIENT
  Sex: Female
  Weight: 62.6 kg

DRUGS (9)
  1. PRASTERONE [Concomitant]
     Route: 065
  2. UNKNOWN MEDICATION [Concomitant]
     Route: 065
  3. MULTI-VITAMINS [Concomitant]
     Route: 065
  4. STELARA [Suspect]
     Indication: PSORIASIS
     Dosage: FOR A YEAR
     Route: 058
  5. BUPROPION HCL [Concomitant]
     Route: 065
  6. FISH OIL [Concomitant]
     Route: 065
  7. FLUOCINONIDE [Concomitant]
     Route: 065
  8. ESTROGEN/PROGESTERONE [Concomitant]
     Route: 065
  9. CALCIUM [Concomitant]
     Route: 065

REACTIONS (1)
  - MALIGNANT MELANOMA [None]
